FAERS Safety Report 9354218 (Version 7)
Quarter: 2013Q4

REPORT INFORMATION
  Report Type: Spontaneous
  Country: FR (occurrence: FR)
  Receive Date: 20130618
  Receipt Date: 20131028
  Transmission Date: 20140711
  Serious: Yes (Death, Hospitalization)
  Sender: FDA-Public Use
  Company Number: FR-TEVA-412975ISR

PATIENT
  Age: 81 Year
  Sex: Male
  Weight: 115 kg

DRUGS (17)
  1. FUROSEMIDE TEVA 40 MG [Suspect]
     Indication: CARDIAC FAILURE
     Dosage: 80 MILLIGRAM DAILY;
     Route: 048
     Dates: start: 20130516, end: 20130608
  2. FUROSEMIDE TEVA 40 MG [Suspect]
     Indication: OEDEMA PERIPHERAL
     Route: 048
     Dates: start: 20130610
  3. FUROSEMIDE TEVA 40 MG [Suspect]
     Indication: DYSPNOEA EXERTIONAL
  4. FUROSEMIDE TEVA 40 MG [Suspect]
     Indication: RALES
  5. ATORVASTATIN PHR LAB 20MG [Suspect]
     Indication: HYPERCHOLESTEROLAEMIA
     Dosage: 1 DOSAGE FORMS DAILY;
     Route: 048
     Dates: start: 201204
  6. ALLOPURINOL PHR LAB 200 [Suspect]
     Indication: HYPERURICAEMIA
     Dosage: 1 DOSAGE FORMS DAILY;
     Route: 048
     Dates: start: 201204
  7. SPIRONOLACTONE TEVA 50MG [Suspect]
     Dosage: 1 DOSAGE FORMS DAILY;
     Route: 048
  8. OMEPRAZOLE PHR LAB [Suspect]
     Dosage: 20 MILLIGRAM DAILY;
     Route: 048
  9. PAROXETINE 20 MG [Suspect]
     Dosage: 20 MILLIGRAM DAILY;
     Route: 048
  10. ALFUZOSINE [Suspect]
     Dosage: 1 DOSAGE FORMS DAILY;
     Route: 048
  11. ZOLPIDEM [Suspect]
     Dosage: 1 DOSAGE FORMS DAILY;
     Route: 048
  12. PARACETAMOL [Suspect]
     Dosage: 3 GRAM DAILY;
     Route: 048
  13. IRBESARTAN ZENTIVA [Suspect]
     Indication: HYPERTENSION
     Dosage: 75 MILLIGRAM DAILY;
     Route: 048
     Dates: start: 201204
  14. DIFFU K [Suspect]
     Indication: HYPOKALAEMIA
     Dosage: 3 DOSAGE FORMS DAILY;
     Route: 048
     Dates: start: 201204
  15. NOVOMIX [Suspect]
     Indication: TYPE 2 DIABETES MELLITUS
     Dosage: 40 U MORNING 18 U EVENING
     Route: 058
     Dates: start: 201204
  16. DICLOFENAC TEVA 1% GEL CUTANEOUS APPLICATION [Concomitant]
     Route: 003
  17. ALDACTONE [Concomitant]
     Indication: OEDEMA PERIPHERAL
     Dosage: 1 DOSAGE FORMS DAILY;
     Route: 048
     Dates: start: 201204

REACTIONS (5)
  - Pulmonary oedema [Fatal]
  - Cardiac failure [Fatal]
  - Blood creatinine increased [Unknown]
  - Fall [Unknown]
  - No therapeutic response [Unknown]
